FAERS Safety Report 7325806-0 (Version None)
Quarter: 2011Q1

REPORT INFORMATION
  Report Type: 
  Country: None (occurrence: None)
  Receive Date: 20110225
  Receipt Date: 20110225
  Transmission Date: 20110831
  Serious: Yes (Life-Threatening, Hospitalization, Disabling)
  Sender: FDA-Public Use
  Company Number: None

PATIENT
  Age: 61 Year
  Sex: Female
  Weight: 97.5234 kg

DRUGS (1)
  1. CVS/WALGREEN ALCOHOL SWABS [Suspect]
     Indication: TYPE 1 DIABETES MELLITUS
     Dates: start: 19960101, end: 20100928

REACTIONS (10)
  - ENDOCARDITIS [None]
  - TRANSIENT ISCHAEMIC ATTACK [None]
  - STAPHYLOCOCCAL INFECTION [None]
  - RENAL FAILURE CHRONIC [None]
  - BLOOD GLUCOSE INCREASED [None]
  - DIALYSIS [None]
  - MALAISE [None]
  - MYOCARDIAL INFARCTION [None]
  - CARDIAC FAILURE CONGESTIVE [None]
  - CARDIAC VALVE VEGETATION [None]
